FAERS Safety Report 9201717 (Version 1)
Quarter: 2013Q1

REPORT INFORMATION
  Report Type: Spontaneous
  Country: GB (occurrence: None)
  Receive Date: 20130327
  Receipt Date: 20130327
  Transmission Date: 20140127
  Serious: Yes (Other)
  Sender: FDA-Public Use
  Company Number: 2013-04967

PATIENT
  Age: 33 Year
  Sex: Female
  Weight: 72 kg

DRUGS (8)
  1. MIRTAZAPINE (UNKNOWN) (MIRTAZAPINE) UNK, UNKUNK [Suspect]
     Indication: DEPRESSION
     Dates: start: 20120408, end: 20130221
  2. SEROQUEL XR (QUETIAPINE FUMARATE) [Concomitant]
  3. ZOPICLONE (ZOPICLONE) [Concomitant]
  4. BUSCOPAN (HYOSCINE BUTYLBROMIDE) [Concomitant]
  5. CLONAZEPAM (CLONAZEPAM) (CLONAZEPAM) [Concomitant]
  6. PROMETHAZINE HYDROCHLORIDE (PROMETHAZINE HYDROCHLORIDE) [Concomitant]
  7. CODEINE (CODEINE) [Concomitant]
  8. MEFENAMIC ACID (MEFENAMIC ACID) [Concomitant]

REACTIONS (4)
  - Suicidal ideation [None]
  - Bipolar I disorder [None]
  - Withdrawal syndrome [None]
  - Mood swings [None]
